FAERS Safety Report 4640639-1 (Version None)
Quarter: 2005Q2

REPORT INFORMATION
  Report Type: 
  Country: None (occurrence: None)
  Receive Date: 20050419
  Receipt Date: 20050407
  Transmission Date: 20051028
  Serious: Yes (Congenital Anomaly)
  Sender: FDA-Public Use
  Company Number: 2005056420

PATIENT

DRUGS (3)
  1. VIRACEPT [Suspect]
     Indication: HIV INFECTION
     Dosage: 2500 MT (DAILY), ORAL
     Route: 048
     Dates: start: 20031110, end: 20050228
  2. LAMIVUDINE AND ZIDOVUDINE [Suspect]
     Indication: HIV INFECTION
     Dosage: 900 MG (DAILY), ORAL
     Route: 048
     Dates: start: 20031015
  3. KALETRA [Suspect]
     Indication: HIV INFECTION
     Dosage: 6 (DAILY), ORAL
     Route: 048
     Dates: start: 20031015

REACTIONS (6)
  - BLADDER HYPERTROPHY [None]
  - CONGENITAL HYDRONEPHROSIS [None]
  - CONGENITAL URETHRAL ANOMALY [None]
  - DRUG EXPOSURE DURING PREGNANCY [None]
  - FOETAL DISORDER [None]
  - PREGNANCY [None]
